FAERS Safety Report 9048319 (Version 1)
Quarter: 2013Q1

REPORT INFORMATION
  Report Type: Spontaneous
  Country: US (occurrence: US)
  Receive Date: 20130204
  Receipt Date: 20130204
  Transmission Date: 20140127
  Serious: No
  Sender: FDA-Public Use
  Company Number: US-AMGEN-USASP2013001618

PATIENT
  Age: 26 Year
  Sex: Male

DRUGS (1)
  1. ENBREL [Suspect]
     Indication: PSORIATIC ARTHROPATHY
     Dosage: 50 MG, QWK
     Dates: start: 20120221

REACTIONS (4)
  - Hyperhidrosis [Not Recovered/Not Resolved]
  - Night sweats [Not Recovered/Not Resolved]
  - Pallor [Not Recovered/Not Resolved]
  - Nasopharyngitis [Not Recovered/Not Resolved]
